FAERS Safety Report 21061920 (Version 1)
Quarter: 2022Q3

REPORT INFORMATION
  Report Type: Spontaneous
  Country: US (occurrence: US)
  Receive Date: 20220710
  Receipt Date: 20220710
  Transmission Date: 20221026
  Serious: Yes (Other)
  Sender: FDA-Public Use
  Company Number: US-KVK-TECH, INC-20220700044

PATIENT
  Sex: Male

DRUGS (2)
  1. INDOMETHACIN [Suspect]
     Active Substance: INDOMETHACIN
     Indication: Ebstein^s anomaly
     Dosage: 100 MILLIGRAM, SINGLE
     Route: 064
  2. INDOMETHACIN [Suspect]
     Active Substance: INDOMETHACIN
     Dosage: 25 MILLIGRAM, TID
     Route: 064

REACTIONS (3)
  - Ultrasound foetal abnormal [Recovered/Resolved]
  - Foetal exposure during pregnancy [Recovered/Resolved]
  - Drug effective for unapproved indication [Recovered/Resolved]
